FAERS Safety Report 10006324 (Version 2)
Quarter: 2014Q3

REPORT INFORMATION
  Report Type: Spontaneous
  Country: US (occurrence: US)
  Receive Date: 20140313
  Receipt Date: 20140702
  Transmission Date: 20150326
  Serious: Yes (Hospitalization, Other)
  Sender: FDA-Public Use
  Company Number: US-BAYER-2014-036378

PATIENT
  Age: 29 Year
  Sex: Female
  Weight: 72.56 kg

DRUGS (14)
  1. PROPOXYPHENE HYDROCHLORIDE AND ACETAMINOPHEN [Concomitant]
     Active Substance: ACETAMINOPHEN\PROPOXYPHENE HYDROCHLORIDE
     Dosage: 2 Q 4-6 H PRN
     Route: 048
  2. TOPAMAX [Concomitant]
     Active Substance: TOPIRAMATE
  3. TYLENOL WITH CODEINE [Concomitant]
     Active Substance: ACETAMINOPHEN\CODEINE PHOSPHATE
  4. DEXPAK [Concomitant]
     Active Substance: DEXAMETHASONE
     Dosage: 1.5 MG, 12 DAY
  5. AZITHROMYCIN [Concomitant]
     Active Substance: AZITHROMYCIN ANHYDROUS
     Dosage: 250 MG, TAKE TWO AT ONCE AND THEN ONE FOR 4 DAYS
  6. NEURONTIN [Concomitant]
     Active Substance: GABAPENTIN
  7. YAZ [Suspect]
     Active Substance: DROSPIRENONE\ETHINYL ESTRADIOL
     Dosage: UNK
     Dates: start: 2007, end: 2009
  8. CLARITIN-D 12 HOUR [Concomitant]
     Active Substance: LORATADINE\PSEUDOEPHEDRINE SULFATE
     Dosage: UNK MG, UNK
  9. PLAVIX [Concomitant]
     Active Substance: CLOPIDOGREL BISULFATE
  10. PROTONIX [Concomitant]
     Active Substance: PANTOPRAZOLE SODIUM
  11. FIORICET [Concomitant]
     Active Substance: ACETAMINOPHEN\BUTALBITAL\CAFFEINE
  12. AMBIEN [Concomitant]
     Active Substance: ZOLPIDEM TARTRATE
  13. CELEXA [Concomitant]
     Active Substance: CITALOPRAM HYDROBROMIDE
     Dosage: 10 MG, DAILY
     Route: 048
  14. NEOSPORIN AF [Concomitant]

REACTIONS (13)
  - Cerebrovascular accident [None]
  - Abdominal pain [None]
  - Gait disturbance [None]
  - Visual field defect [None]
  - Pain [None]
  - General physical health deterioration [None]
  - Myalgia [None]
  - Emotional distress [None]
  - Depression [None]
  - Brain injury [None]
  - Injury [None]
  - Anhedonia [None]
  - Dysstasia [None]

NARRATIVE: CASE EVENT DATE: 2008
